FAERS Safety Report 19247218 (Version 1)
Quarter: 2021Q2

REPORT INFORMATION
  Report Type: Report from Study
  Country: JP (occurrence: JP)
  Receive Date: 20210512
  Receipt Date: 20210512
  Transmission Date: 20210717
  Serious: Yes (Death, Hospitalization)
  Sender: FDA-Public Use
  Company Number: PHHY2014JP177957

PATIENT
  Sex: Male
  Weight: 43 kg

DRUGS (2)
  1. VOTRIENT [Suspect]
     Active Substance: PAZOPANIB HYDROCHLORIDE
     Indication: EXTRASKELETAL OSTEOSARCOMA
     Dosage: 800 MG, QD
     Route: 048
     Dates: start: 20130109, end: 20130219
  2. FAMOTIDINE. [Concomitant]
     Active Substance: FAMOTIDINE
     Indication: VOMITING
     Route: 065

REACTIONS (3)
  - Pneumonia [Unknown]
  - Extraskeletal osteosarcoma [Fatal]
  - Condition aggravated [Fatal]

NARRATIVE: CASE EVENT DATE: 20130220
